FAERS Safety Report 8594526-7 (Version None)
Quarter: 2012Q3

REPORT INFORMATION
  Report Type: 
  Country: None (occurrence: None)
  Receive Date: 20120815
  Receipt Date: 20120807
  Transmission Date: 20120928
  Serious: Yes (Hospitalization, Other)
  Sender: FDA-Public Use
  Company Number: US-BAYER-2011-049658

PATIENT
  Age: 38 Year
  Sex: Female
  Weight: 65.76 kg

DRUGS (27)
  1. DRISDOL [Concomitant]
     Dosage: 50 MG, UNK
     Route: 048
  2. ALLEGRA-D [FEXOFENADINE HYDROCHLORIDE,PSEUDOEPHEDRINE] [Concomitant]
     Dosage: UNK UNK, QD
     Route: 048
  3. DEPO-MEDROL [Concomitant]
     Dosage: 2 DF, UNK
     Dates: start: 20090521
  4. YAZ [Suspect]
     Indication: CONTRACEPTION
     Dosage: UNK
     Dates: start: 20080101, end: 20090101
  5. NEXIUM [Concomitant]
     Dosage: 40 MG, PRN
     Route: 048
  6. PROPOXACET-N [Concomitant]
     Dosage: UNK
     Route: 048
     Dates: start: 20090317
  7. PROVIGIL [Concomitant]
     Dosage: 200 MG, UNK
     Route: 048
  8. ZOLOFT [Concomitant]
     Dosage: 50 MG, UNK
     Route: 048
  9. VITAMIN B-12 [Concomitant]
     Dosage: UNK UNK, Q1MON
     Route: 030
  10. PROPRANOLOL [Concomitant]
     Dosage: 40 MG, BID
     Route: 048
  11. PROSCAR [Concomitant]
     Dosage: 5 MG, OM
     Route: 048
  12. RESTORIL [Concomitant]
     Dosage: 15 MG, HS
     Route: 048
  13. EXCEDRIN (MIGRAINE) [Concomitant]
     Dosage: UNK UNK, PRN
     Route: 048
  14. ZYRTEC [Concomitant]
  15. ALLBEE PLUS VITAMIN C [Concomitant]
     Dosage: 1 DF, QD
     Route: 048
  16. CARISOPRODOL [Concomitant]
     Dosage: 350 MG, UNK
     Route: 048
     Dates: start: 20090317
  17. TYLENOL [Concomitant]
     Dosage: 650 MG, Q4HR
     Route: 048
  18. MAGNESIUM OXIDE [Concomitant]
     Dosage: 400 MG, BID
  19. PROTONIX [Concomitant]
     Dosage: 40 MG, UNK
     Route: 048
  20. CATAPRES [Concomitant]
     Dosage: 1 DF, OW
     Route: 062
  21. PREDNISONE TAB [Concomitant]
     Dosage: 10 MG, UNK
     Route: 048
     Dates: start: 20090323
  22. AMBIEN CR [Concomitant]
     Dosage: 12.5 MG, UNK
     Route: 048
     Dates: start: 20090323
  23. OMEGA 3 FATTY ACIDS [Concomitant]
     Dosage: 1 DF, QD
     Route: 048
  24. ROBAXIN [Concomitant]
     Indication: PAIN
     Dosage: UNK UNK, PRN
     Route: 048
     Dates: start: 20060101
  25. ALLERGY MEDICATION [Concomitant]
     Indication: MULTIPLE ALLERGIES
     Dosage: UNK UNK, QD
     Route: 048
  26. ZOLPIDEM [Concomitant]
     Dosage: 10 MG, UNK
     Route: 048
     Dates: start: 20090402
  27. AZITHROMYCIN [Concomitant]
     Dosage: 250 MG, UNK
     Route: 048
     Dates: start: 20090521

REACTIONS (9)
  - PULMONARY EMBOLISM [None]
  - PERICARDIAL EFFUSION [None]
  - ANXIETY [None]
  - PAIN [None]
  - PERICARDITIS [None]
  - PULMONARY OEDEMA [None]
  - PLEURITIC PAIN [None]
  - PERONEAL NERVE PALSY [None]
  - EMOTIONAL DISTRESS [None]
